FAERS Safety Report 20437834 (Version 5)
Quarter: 2022Q3

REPORT INFORMATION
  Report Type: Spontaneous
  Country: US (occurrence: US)
  Receive Date: 20220207
  Receipt Date: 20220901
  Transmission Date: 20221027
  Serious: Yes (Other)
  Sender: FDA-Public Use
  Company Number: US-BIOGEN-2022BI01093085

PATIENT
  Age: 69 Year
  Sex: Female

DRUGS (15)
  1. TECFIDERA [Suspect]
     Active Substance: DIMETHYL FUMARATE
     Indication: Relapsing-remitting multiple sclerosis
     Route: 050
     Dates: start: 20190723
  2. TECFIDERA [Suspect]
     Active Substance: DIMETHYL FUMARATE
     Route: 050
     Dates: end: 20220103
  3. TECFIDERA [Suspect]
     Active Substance: DIMETHYL FUMARATE
     Route: 050
     Dates: start: 20190725
  4. SEROQUEL [Concomitant]
     Active Substance: QUETIAPINE FUMARATE
     Indication: Product used for unknown indication
     Route: 050
  5. PAXIL [Concomitant]
     Active Substance: PAROXETINE HYDROCHLORIDE
     Indication: Product used for unknown indication
     Route: 050
  6. HYDROCHLOROTHIAZIDE [Concomitant]
     Active Substance: HYDROCHLOROTHIAZIDE
     Indication: Product used for unknown indication
     Route: 050
  7. AVAPRO [Concomitant]
     Active Substance: IRBESARTAN
     Indication: Product used for unknown indication
     Route: 050
  8. GABAPENTIN [Concomitant]
     Active Substance: GABAPENTIN
     Indication: Product used for unknown indication
     Route: 050
  9. VITAMIN B12 [Concomitant]
     Active Substance: CYANOCOBALAMIN
     Indication: Product used for unknown indication
     Route: 050
  10. CALCIUM [Concomitant]
     Active Substance: CALCIUM
     Indication: Product used for unknown indication
     Route: 050
  11. ALPHA LIPOIC ACID [Concomitant]
     Active Substance: .ALPHA.-LIPOIC ACID
     Indication: Product used for unknown indication
     Route: 050
  12. BIOTIN [Concomitant]
     Active Substance: BIOTIN
     Indication: Product used for unknown indication
     Route: 050
  13. OMEGA 3 [Concomitant]
     Active Substance: CAPSAICIN
     Indication: Product used for unknown indication
     Route: 050
  14. LEVOTHYROXINE [Concomitant]
     Active Substance: LEVOTHYROXINE
     Indication: Product used for unknown indication
     Route: 050
  15. VITAMIN C [Concomitant]
     Active Substance: ASCORBIC ACID
     Indication: Product used for unknown indication
     Route: 050

REACTIONS (8)
  - White blood cell count decreased [Not Recovered/Not Resolved]
  - Gastric disorder [Unknown]
  - CD19 lymphocytes increased [Unknown]
  - T-lymphocyte count decreased [Unknown]
  - CD4 lymphocytes decreased [Unknown]
  - CD8 lymphocytes decreased [Unknown]
  - Lymphocyte count decreased [Unknown]
  - Lymphopenia [Unknown]

NARRATIVE: CASE EVENT DATE: 20220217
